FAERS Safety Report 14165336 (Version 2)
Quarter: 2017Q4

REPORT INFORMATION
  Report Type: Spontaneous
  Country: CM (occurrence: CM)
  Receive Date: 20171107
  Receipt Date: 20171108
  Transmission Date: 20180321
  Serious: Yes (Other)
  Sender: FDA-Public Use
  Company Number: CM-GLAXOSMITHKLINE-CM2017GSK169755

PATIENT
  Age: 10 Month
  Sex: Male

DRUGS (1)
  1. CATAFLAM [Suspect]
     Active Substance: DICLOFENAC POTASSIUM
     Indication: DENTAL CARE
     Dosage: 5 ML, TID
     Route: 048
     Dates: start: 201708

REACTIONS (2)
  - Haematochezia [Recovered/Resolved]
  - Product use in unapproved indication [Unknown]
